FAERS Safety Report 8042295-1 (Version None)
Quarter: 2012Q1

REPORT INFORMATION
  Report Type: 
  Country: None (occurrence: None)
  Receive Date: 20120112
  Receipt Date: 20120110
  Transmission Date: 20120608
  Serious: Yes (Hospitalization)
  Sender: FDA-Public Use
  Company Number: US-ROCHE-1023939

PATIENT
  Sex: Male
  Weight: 94.2 kg

DRUGS (7)
  1. LEVEMIR [Concomitant]
     Route: 058
  2. BYETTA [Concomitant]
     Route: 058
  3. BENAZEPRIL HYDROCHLORIDE [Concomitant]
  4. RANIBIZUMAB [Suspect]
     Indication: DIABETIC RETINAL OEDEMA
     Route: 050
     Dates: start: 20110516
  5. GLIPIZIDE [Concomitant]
  6. LOVASTATIN [Concomitant]
     Route: 048
  7. METFORMIN HCL [Concomitant]
     Route: 048

REACTIONS (1)
  - OSTEOMYELITIS [None]
